FAERS Safety Report 6112905-4 (Version None)
Quarter: 2009Q1

REPORT INFORMATION
  Report Type: 
  Country: None (occurrence: None)
  Receive Date: 20090312
  Receipt Date: 20090209
  Transmission Date: 20090719
  Serious: No
  Sender: FDA-Public Use
  Company Number: US-BAYER-200910558BCC

PATIENT
  Age: 37 Year
  Sex: Male
  Weight: 91 kg

DRUGS (1)
  1. ALEVE [Suspect]
     Indication: NECK PAIN
     Dosage: TOTAL DAILY DOSE: 440 MG  UNIT DOSE: 220 MG
     Dates: start: 20090207

REACTIONS (6)
  - BURNING SENSATION [None]
  - DRUG HYPERSENSITIVITY [None]
  - EYE SWELLING [None]
  - LIP BLISTER [None]
  - LIP SWELLING [None]
  - OCULAR HYPERAEMIA [None]
